FAERS Safety Report 22368633 (Version 3)
Quarter: 2023Q2

REPORT INFORMATION
  Report Type: Spontaneous
  Country: US (occurrence: US)
  Receive Date: 20230525
  Receipt Date: 20230626
  Transmission Date: 20230722
  Serious: No
  Sender: FDA-Public Use
  Company Number: US-PFIZER INC-202300199993

PATIENT
  Sex: Female

DRUGS (1)
  1. MEROPENEM [Suspect]
     Active Substance: MEROPENEM
     Dosage: 500 MG, DAILY
     Route: 042

REACTIONS (2)
  - Diarrhoea [Unknown]
  - Blood creatinine increased [Unknown]
